FAERS Safety Report 7576717-7 (Version None)
Quarter: 2011Q2

REPORT INFORMATION
  Report Type: 
  Country: None (occurrence: None)
  Receive Date: 20110624
  Receipt Date: 20110624
  Transmission Date: 20111010
  Serious: Yes (Life-Threatening, Other)
  Sender: FDA-Public Use
  Company Number: None

PATIENT
  Age: 5 Year
  Sex: Female
  Weight: 16.3295 kg

DRUGS (1)
  1. HIZENTRA [Suspect]
     Indication: IMMUNODEFICIENCY
     Dosage: 15ML WEEKLY SQ
     Route: 058
     Dates: start: 20101201, end: 20110119

REACTIONS (3)
  - WEIGHT DECREASED [None]
  - VOMITING [None]
  - DIARRHOEA [None]
